FAERS Safety Report 6998235-7 (Version None)
Quarter: 2010Q3

REPORT INFORMATION
  Report Type: 
  Country: None (occurrence: None)
  Receive Date: 20100920
  Receipt Date: 20071106
  Transmission Date: 20110219
  Serious: Yes (Hospitalization)
  Sender: FDA-Public Use
  Company Number: US-ASTRAZENECA-2007UW20404

PATIENT
  Age: 59 Year
  Sex: Female
  Weight: 97.7 kg

DRUGS (7)
  1. SEROQUEL [Suspect]
     Indication: DEPRESSION
     Route: 048
     Dates: start: 20050201, end: 20061101
  2. DILANTIN [Concomitant]
     Indication: COMPLEX PARTIAL SEIZURES
     Dates: start: 19940317
  3. ASPIRIN [Concomitant]
     Route: 048
     Dates: start: 19930825
  4. SIMVASTATIN [Concomitant]
     Dates: start: 20061218
  5. LISINOPRIL [Concomitant]
     Dates: start: 20061218
  6. LASIX [Concomitant]
     Route: 048
     Dates: start: 20061216
  7. LOTREL [Concomitant]
     Dates: start: 20061216

REACTIONS (10)
  - BLOOD CHOLESTEROL INCREASED [None]
  - BLOOD TRIGLYCERIDES INCREASED [None]
  - CHEST PAIN [None]
  - DIABETES MELLITUS [None]
  - DIARRHOEA [None]
  - DYSPNOEA [None]
  - HYPERGLYCAEMIA [None]
  - LIMB INJURY [None]
  - TYPE 2 DIABETES MELLITUS [None]
  - VOMITING [None]
